FAERS Safety Report 5208937-0 (Version None)
Quarter: 2007Q1

REPORT INFORMATION
  Report Type: 
  Country: None (occurrence: None)
  Receive Date: 20070111
  Receipt Date: 20070111
  Transmission Date: 20070707
  Serious: Yes (Hospitalization)
  Sender: FDA-Public Use
  Company Number: None

PATIENT
  Age: 60 Year
  Sex: Male
  Weight: 104.8 kg

DRUGS (1)
  1. CEFEPIME [Suspect]
     Indication: PNEUMONIA
     Dosage: 4G, 2G Q12H, INTRAVEN
     Route: 042
     Dates: start: 20061203

REACTIONS (1)
  - NEUTROPENIA [None]
